FAERS Safety Report 16681306 (Version 2)
Quarter: 2019Q3

REPORT INFORMATION
  Report Type: Spontaneous
  Country: FR (occurrence: FR)
  Receive Date: 20190808
  Receipt Date: 20190827
  Transmission Date: 20191004
  Serious: Yes (Hospitalization, Other)
  Sender: FDA-Public Use
  Company Number: FR-AUROBINDO-AUR-APL-2019-052520

PATIENT

DRUGS (3)
  1. DOXYCYCLINE. [Suspect]
     Active Substance: DOXYCYCLINE
     Indication: CARDIAC VALVE VEGETATION
     Dosage: 200 MILLIGRAM, DAILY
     Route: 065
  2. AMOXICILLIN. [Suspect]
     Active Substance: AMOXICILLIN
     Indication: CARDIAC VALVE VEGETATION
     Dosage: 12 GRAM, DAILY
     Route: 065
  3. GENTAMICIN. [Suspect]
     Active Substance: GENTAMICIN
     Indication: CARDIAC VALVE VEGETATION
     Dosage: 240 MILLIGRAM, DAILY
     Route: 065

REACTIONS (5)
  - Brain abscess [Recovered/Resolved]
  - Product use in unapproved indication [Unknown]
  - Embolic stroke [Unknown]
  - Off label use [Unknown]
  - Cardiac valve fibroelastoma [Unknown]
